FAERS Safety Report 10475764 (Version 1)
Quarter: 2014Q3

REPORT INFORMATION
  Report Type: Spontaneous
  Country: US (occurrence: US)
  Receive Date: 20140925
  Receipt Date: 20140925
  Transmission Date: 20150326
  Serious: No
  Sender: FDA-Public Use
  Company Number: US-GLAXOSMITHKLINE-A1040642A

PATIENT
  Age: 73 Year
  Sex: Female

DRUGS (7)
  1. PREDNISONE. [Concomitant]
     Active Substance: PREDNISONE
  2. SPIRIVA [Concomitant]
     Active Substance: TIOTROPIUM BROMIDE MONOHYDRATE
  3. DILTIAZEM [Concomitant]
     Active Substance: DILTIAZEM
  4. RYTHMOL SR [Suspect]
     Active Substance: PROPAFENONE HYDROCHLORIDE
     Indication: ARRHYTHMIA
     Dosage: 225MG TWICE PER DAY
     Route: 048
     Dates: start: 201308
  5. DIAVAN [Concomitant]
     Active Substance: ASCORBIC ACID/ CHROMIUM/ SELENIUM/VANADYL SULFATE
  6. WARFARIN [Concomitant]
     Active Substance: WARFARIN
  7. FLOVENT [Concomitant]
     Active Substance: FLUTICASONE PROPIONATE

REACTIONS (1)
  - Heart rate increased [Recovered/Resolved]

NARRATIVE: CASE EVENT DATE: 201308
